FAERS Safety Report 23677734 (Version 1)
Quarter: 2024Q1

REPORT INFORMATION
  Report Type: Spontaneous
  Country: FR (occurrence: FR)
  Receive Date: 20240327
  Receipt Date: 20240327
  Transmission Date: 20240410
  Serious: Yes (Hospitalization)
  Sender: FDA-Public Use
  Company Number: None

PATIENT
  Age: 53 Year
  Sex: Female
  Weight: 61 kg

DRUGS (3)
  1. VINCRISTINE [Suspect]
     Active Substance: VINCRISTINE
     Indication: Oligodendroglioma
     Dosage: UNK, 10MG 2 TIMES PER CYCLE
     Route: 042
     Dates: start: 20230419
  2. LOMUSTINE [Suspect]
     Active Substance: LOMUSTINE
     Indication: Oligodendroglioma
     Dosage: UNK, 70 MG/M2  TIME PER CYCLE
     Route: 048
     Dates: start: 20230411
  3. PROCARBAZINE HYDROCHLORIDE [Suspect]
     Active Substance: PROCARBAZINE HYDROCHLORIDE
     Indication: Oligodendroglioma
     Dosage: 100MG 1 TIMES PER DAY. D8 TO D21/CYCLE
     Route: 048
     Dates: start: 20230419

REACTIONS (2)
  - Vascular stent thrombosis [Recovered/Resolved]
  - Off label use [Unknown]

NARRATIVE: CASE EVENT DATE: 20230419
